FAERS Safety Report 6359019-6 (Version None)
Quarter: 2009Q3

REPORT INFORMATION
  Report Type: 
  Country: None (occurrence: None)
  Receive Date: 20090917
  Receipt Date: 20070514
  Transmission Date: 20100115
  Serious: No
  Sender: FDA-Public Use
  Company Number: US-ASTRAZENECA-2006UW11222

PATIENT
  Age: 49 Year
  Sex: Male
  Weight: 117.1 kg

DRUGS (14)
  1. SEROQUEL [Suspect]
     Indication: ANXIETY
     Route: 048
     Dates: start: 19970101
  2. SEROQUEL [Suspect]
     Indication: SCHIZOPHRENIA
     Route: 048
     Dates: start: 19970101
  3. SEROQUEL [Suspect]
     Indication: NERVOUSNESS
     Route: 048
     Dates: start: 19970101
  4. SEROQUEL [Suspect]
     Route: 048
     Dates: start: 20010416
  5. SEROQUEL [Suspect]
     Route: 048
     Dates: start: 20010416
  6. SEROQUEL [Suspect]
     Route: 048
     Dates: start: 20010416
  7. ZYPREXA [Suspect]
     Dates: start: 19940101
  8. HALDOL [Concomitant]
  9. RISPERDAL [Concomitant]
  10. THORAZINE [Concomitant]
  11. MARIJUANA [Concomitant]
     Dates: start: 19740101, end: 19940101
  12. GLUCOPHAGE [Concomitant]
     Dates: start: 20020202
  13. ZESTRIL [Concomitant]
     Dates: start: 20020202
  14. ALLOPURINOL [Concomitant]
     Dates: start: 20020202

REACTIONS (5)
  - BLOOD CHOLESTEROL INCREASED [None]
  - BLOOD TRIGLYCERIDES [None]
  - DIABETES MELLITUS [None]
  - TYPE 1 DIABETES MELLITUS [None]
  - TYPE 2 DIABETES MELLITUS [None]
